FAERS Safety Report 8161386 (Version 4)
Quarter: 2012Q4

REPORT INFORMATION
  Report Type: 
  Country: JP (occurrence: JP)
  Receive Date: 20110929
  Receipt Date: 20121015
  Transmission Date: 20130627
  Serious: Yes (Life-Threatening, Hospitalization)
  Sender: FDA-Public Use
  Company Number: JP-ASTELLAS-2011JP006765

PATIENT
  Age: 74 Year
  Sex: Male

DRUGS (9)
  1. PROGRAF [Suspect]
     Indication: LUPUS NEPHRITIS
     Dosage: 3 mg, UID/QD
     Route: 048
     Dates: start: 20110427, end: 20110919
  2. PROGRAF [Suspect]
     Indication: SYSTEMIC LUPUS ERYTHEMATOSUS
  3. PREDONINE [Concomitant]
     Indication: SYSTEMIC LUPUS ERYTHEMATOSUS
     Dosage: 10 mg, Unknown/D
     Route: 048
     Dates: start: 20110331, end: 201107
  4. PREDONINE [Concomitant]
     Indication: LUPUS NEPHRITIS
     Dosage: 7.5 mg, UID/QD
     Route: 048
     Dates: start: 201107, end: 20110921
  5. PREDONINE [Concomitant]
     Dosage: 30 mg, Unknown/D
     Route: 048
     Dates: start: 20110922
  6. CONIEL [Concomitant]
     Indication: HYPERTENSION
     Dosage: 4 mg, UID/QD
     Route: 048
     Dates: start: 201103
  7. BAKTAR [Concomitant]
     Dosage: 100 mg, UID/QD
     Route: 048
     Dates: start: 201103
  8. PARIET [Concomitant]
     Dosage: 10 mg, UID/QD
     Route: 048
     Dates: start: 201103
  9. ISCOTIN [Concomitant]
     Dosage: UNK
     Route: 048
     Dates: start: 2011

REACTIONS (4)
  - Cardiac tamponade [Recovering/Resolving]
  - Cardiomyopathy [Recovering/Resolving]
  - Pericardial effusion [Recovering/Resolving]
  - Pericarditis [Recovering/Resolving]
